FAERS Safety Report 12809153 (Version 1)
Quarter: 2016Q4

REPORT INFORMATION
  Report Type: Spontaneous
  Country: US (occurrence: US)
  Receive Date: 20161004
  Receipt Date: 20161004
  Transmission Date: 20170207
  Serious: No
  Sender: FDA-Public Use
  Company Number: US-ANTARES PHARMA, INC.-2016-SPO-SU-0004

PATIENT

DRUGS (1)
  1. SUMATRIPTAN INJECTION, FOR SUBCUTANEOUS USE [Suspect]
     Active Substance: SUMATRIPTAN
     Indication: MIGRAINE
     Dosage: 6 MG/0.5ML, UNK
     Route: 058

REACTIONS (2)
  - Syringe issue [Unknown]
  - Device malfunction [Unknown]
